FAERS Safety Report 13276828 (Version 2)
Quarter: 2017Q4

REPORT INFORMATION
  Report Type: Spontaneous
  Country: JP (occurrence: JP)
  Receive Date: 20170228
  Receipt Date: 20171106
  Transmission Date: 20180320
  Serious: Yes (Hospitalization)
  Sender: FDA-Public Use
  Company Number: JP-ASTRAZENECA-2017SE20682

PATIENT
  Age: 83 Year
  Sex: Male

DRUGS (7)
  1. BETANIS [Suspect]
     Active Substance: MIRABEGRON
     Dosage: DOSE UNKNOWN
     Route: 065
     Dates: start: 20161222
  2. FLIVAS [Suspect]
     Active Substance: NAFTOPIDIL
     Dosage: DOSE UNKNOWN
     Route: 065
     Dates: start: 20161222
  3. BETANIS [Suspect]
     Active Substance: MIRABEGRON
     Dosage: DOSE UNKNOWN
     Route: 065
     Dates: end: 20160705
  4. FLIVAS [Suspect]
     Active Substance: NAFTOPIDIL
     Dosage: DOSE UNKNOWN
     Route: 065
     Dates: end: 20160705
  5. CASODEX [Suspect]
     Active Substance: BICALUTAMIDE
     Indication: PROSTATE CANCER
     Route: 048
     Dates: end: 20160705
  6. CASODEX [Suspect]
     Active Substance: BICALUTAMIDE
     Indication: PROSTATE CANCER
     Route: 048
     Dates: start: 20161222
  7. LEUPLIN [Concomitant]
     Active Substance: LEUPROLIDE ACETATE
     Dosage: DOSE UNKNOWN
     Route: 065

REACTIONS (2)
  - Fall [Recovering/Resolving]
  - Asterixis [Recovering/Resolving]

NARRATIVE: CASE EVENT DATE: 20160701
